FAERS Safety Report 8565511-6 (Version None)
Quarter: 2012Q3

REPORT INFORMATION
  Report Type: 
  Country: None (occurrence: None)
  Receive Date: 20120803
  Receipt Date: 20120723
  Transmission Date: 20120928
  Serious: Yes (Other)
  Sender: FDA-Public Use
  Company Number: FR-JNJFOC-20120712950

PATIENT
  Sex: Male
  Weight: 67 kg

DRUGS (7)
  1. REMICADE [Suspect]
     Route: 042
     Dates: start: 20111001, end: 20120411
  2. REMICADE [Suspect]
     Route: 042
     Dates: start: 20090622, end: 20110713
  3. IMURAN [Concomitant]
     Dates: end: 20111210
  4. REMICADE [Suspect]
     Route: 042
     Dates: start: 20120411, end: 20120605
  5. IMURAN [Concomitant]
     Dates: start: 20111210
  6. REMICADE [Suspect]
     Indication: CROHN'S DISEASE
     Route: 042
     Dates: start: 20120605
  7. REMICADE [Suspect]
     Route: 042
     Dates: start: 20110713, end: 20111001

REACTIONS (2)
  - CROHN'S DISEASE [None]
  - CONDITION AGGRAVATED [None]
